FAERS Safety Report 21382050 (Version 2)
Quarter: 2022Q4

REPORT INFORMATION
  Report Type: Spontaneous
  Country: US (occurrence: US)
  Receive Date: 20220927
  Receipt Date: 20221025
  Transmission Date: 20230113
  Serious: No
  Sender: FDA-Public Use
  Company Number: US-PFIZER INC-202201188116

PATIENT
  Age: 53 Year
  Sex: Male

DRUGS (1)
  1. INLYTA [Suspect]
     Active Substance: AXITINIB
     Dosage: 5 MG, 2X/DAY
     Dates: start: 20220903

REACTIONS (5)
  - Weight decreased [Unknown]
  - Blood pressure increased [Unknown]
  - Decreased appetite [Unknown]
  - Fatigue [Unknown]
  - Hair growth abnormal [Unknown]
